FAERS Safety Report 7882204-9 (Version None)
Quarter: 2011Q4

REPORT INFORMATION
  Report Type: 
  Country: None (occurrence: None)
  Receive Date: 20111101
  Receipt Date: 20110610
  Transmission Date: 20120403
  Serious: No
  Sender: FDA-Public Use
  Company Number: US-AMGEN-USASP2011030006

PATIENT
  Age: 51 Year
  Sex: Female

DRUGS (2)
  1. ENBREL [Suspect]
     Indication: RHEUMATOID ARTHRITIS
     Dosage: 50 MG, QWK
     Dates: start: 20090101
  2. METHOTREXATE [Concomitant]
     Dates: start: 20060101

REACTIONS (4)
  - CONFUSIONAL STATE [None]
  - SOMNOLENCE [None]
  - DRUG ADMINISTERED AT INAPPROPRIATE SITE [None]
  - INJURY ASSOCIATED WITH DEVICE [None]
